FAERS Safety Report 16921494 (Version 1)
Quarter: 2019Q4

REPORT INFORMATION
  Report Type: Spontaneous
  Country: US (occurrence: US)
  Receive Date: 20191015
  Receipt Date: 20191015
  Transmission Date: 20200122
  Serious: Yes (Other)
  Sender: FDA-Public Use
  Company Number: US-FRESENIUS KABI-FK201911254

PATIENT
  Age: 57 Year
  Sex: Male

DRUGS (2)
  1. CALCIUM GLUCONATE (MANUFACTURER UNKNOWN) [Suspect]
     Active Substance: CALCIUM GLUCONATE
     Dosage: CONTINUOUS INFUSION AT 0.6-1.6 ML/KG/HOUR
     Route: 042
  2. CALCIUM GLUCONATE (MANUFACTURER UNKNOWN) [Suspect]
     Active Substance: CALCIUM GLUCONATE
     Indication: SUICIDE ATTEMPT
     Dosage: LOADING DOSE OF 6 ML/KG
     Route: 042

REACTIONS (2)
  - Pancreatitis [Recovered/Resolved]
  - Hypercalcaemia [Recovered/Resolved]
